FAERS Safety Report 12670669 (Version 1)
Quarter: 2016Q3

REPORT INFORMATION
  Report Type: Other
  Country: JP (occurrence: JP)
  Receive Date: 20160822
  Receipt Date: 20160822
  Transmission Date: 20161109
  Serious: Yes (Other)
  Sender: FDA-Public Use
  Company Number: JP-LUPIN PHARMACEUTICALS INC.-2016-01951

PATIENT
  Age: 54 Year
  Sex: Male

DRUGS (2)
  1. VANCOMYCIN [Suspect]
     Active Substance: VANCOMYCIN
     Indication: ACTINOMYCOSIS
     Dosage: 1 G
     Route: 065
  2. PANIPENEM/BETAMIPRON [Suspect]
     Active Substance: BETAMIPRON\PANIPENEM
     Indication: ACTINOMYCOSIS
     Dosage: 1 G
     Route: 048

REACTIONS (1)
  - Renal disorder [Unknown]
